FAERS Safety Report 25242620 (Version 5)
Quarter: 2025Q4

REPORT INFORMATION
  Report Type: Report from Study
  Country: US (occurrence: US)
  Receive Date: 20250427
  Receipt Date: 20251008
  Transmission Date: 20260118
  Serious: Yes (Hospitalization, Other)
  Sender: ALEXION PHARMACEUTICALS
  Company Number: US-AstraZeneca-CH-00854053A

PATIENT
  Age: 84 Year
  Sex: Male

DRUGS (1)
  1. ULTOMIRIS [Suspect]
     Active Substance: RAVULIZUMAB-CWVZ
     Dosage: UNK
     Route: 065

REACTIONS (8)
  - Device related infection [Unknown]
  - Bladder cancer [Unknown]
  - Depression [Unknown]
  - Anxiety [Unknown]
  - Feeling abnormal [Unknown]
  - Blood pressure increased [Unknown]
  - Decreased activity [Unknown]
  - Rash [Unknown]

NARRATIVE: CASE EVENT DATE: 20230101
